FAERS Safety Report 4924294-9 (Version None)
Quarter: 2006Q1

REPORT INFORMATION
  Report Type: 
  Country: None (occurrence: None)
  Receive Date: 20060221
  Receipt Date: 20060213
  Transmission Date: 20060701
  Serious: Yes (Hospitalization)
  Sender: FDA-Public Use
  Company Number: 163-20785-06020284

PATIENT
  Age: 52 Year
  Sex: Male

DRUGS (8)
  1. THALOMID [Suspect]
     Indication: MULTIPLE MYELOMA
     Dosage: 200 MG, DAILY, ORAL
     Route: 048
     Dates: start: 20060127, end: 20060130
  2. BORTEZOMIB (BORTEZOMIB) [Suspect]
     Indication: MULTIPLE MYELOMA
     Dosage: 1.9 MG, DAYS 1, 4, 8, 11, INTRAVENOUS
     Route: 042
     Dates: start: 20060124
  3. BORTEZOMIB (BORTEZOMIB) [Suspect]
     Indication: MULTIPLE MYELOMA
     Dosage: 1.9 MG, DAYS 1, 4, 8, 11, INTRAVENOUS
     Route: 042
     Dates: start: 20060127
  4. DEXAMETHASONE [Suspect]
     Indication: MULTIPLE MYELOMA
     Dosage: 40 MG, DAILY, ORAL
     Route: 048
     Dates: start: 20060127, end: 20060130
  5. CISPLATIN [Suspect]
     Indication: MULTIPLE MYELOMA
     Dosage: 19 MG, DAILY, INTRAVENOUS
     Route: 042
     Dates: start: 20060127, end: 20060130
  6. ADRIAMYCIN PFS [Suspect]
     Indication: MULTIPLE MYELOMA
     Dosage: 19 MG, DAILY, INTRAVENOUS
     Route: 042
     Dates: start: 20060127, end: 20060130
  7. CYCLOPHOSPHAMIDE [Suspect]
     Indication: MULTIPLE MYELOMA
     Dosage: 760 MG, DAILY, INTRAVENOUS
     Route: 042
     Dates: start: 20060127, end: 20060130
  8. ETOPOSIDE [Suspect]
     Indication: MULTIPLE MYELOMA
     Dosage: 76 MG, DAILY, INTRAVENOUS
     Route: 042
     Dates: start: 20060127, end: 20060130

REACTIONS (7)
  - ATELECTASIS [None]
  - DYSPNOEA [None]
  - LYMPHADENOPATHY [None]
  - OEDEMA [None]
  - PRODUCTIVE COUGH [None]
  - PULMONARY MASS [None]
  - SPUTUM DISCOLOURED [None]
